FAERS Safety Report 17257201 (Version 1)
Quarter: 2020Q1

REPORT INFORMATION
  Report Type: Report from Study
  Country: IT (occurrence: IT)
  Receive Date: 20200110
  Receipt Date: 20200110
  Transmission Date: 20200409
  Serious: Yes (Hospitalization)
  Sender: FDA-Public Use
  Company Number: PHHO2011IT023214

PATIENT
  Age: 53 Year
  Sex: Female
  Weight: 80 kg

DRUGS (3)
  1. COMPARATOR LETROZOLE [Suspect]
     Active Substance: LETROZOLE
     Indication: BREAST CANCER METASTATIC
     Dosage: 2.5 MG, QD
     Route: 048
     Dates: start: 20111109, end: 20111220
  2. FULVESTRANT. [Suspect]
     Active Substance: FULVESTRANT
     Indication: BREAST CANCER METASTATIC
     Dosage: UNK
     Route: 030
     Dates: start: 20111109, end: 20111220
  3. PLACEBO [Suspect]
     Active Substance: UNSPECIFIED INGREDIENT
     Indication: BREAST CANCER METASTATIC
     Dosage: UNK
     Route: 048
     Dates: start: 20111109, end: 20111220

REACTIONS (1)
  - Cardiac failure [Recovered/Resolved]

NARRATIVE: CASE EVENT DATE: 20111219
